FAERS Safety Report 24165788 (Version 3)
Quarter: 2024Q4

REPORT INFORMATION
  Report Type: Spontaneous
  Country: US (occurrence: US)
  Receive Date: 20240802
  Receipt Date: 20241007
  Transmission Date: 20250115
  Serious: No
  Sender: BIOGEN
  Company Number: US-BIOGEN-2024BI01276030

PATIENT
  Sex: Female

DRUGS (1)
  1. TYSABRI [Suspect]
     Active Substance: NATALIZUMAB
     Indication: Multiple sclerosis
     Route: 050
     Dates: start: 20240328

REACTIONS (9)
  - Musculoskeletal disorder [Not Recovered/Not Resolved]
  - Muscle disorder [Unknown]
  - Muscular weakness [Unknown]
  - Dysstasia [Unknown]
  - Gait disturbance [Unknown]
  - Feeding disorder [Unknown]
  - Multiple sclerosis [Unknown]
  - Weight decreased [Unknown]
  - Tremor [Unknown]

NARRATIVE: CASE EVENT DATE: 20240101
